FAERS Safety Report 19746064 (Version 1)
Quarter: 2021Q3

REPORT INFORMATION
  Report Type: Report from Study
  Country: US (occurrence: US)
  Receive Date: 20210825
  Receipt Date: 20210825
  Transmission Date: 20211014
  Serious: Yes (Other)
  Sender: FDA-Public Use
  Company Number: US-EMD SERONO-9260574

PATIENT
  Age: 71 Year
  Sex: Female

DRUGS (1)
  1. REBIF [Suspect]
     Active Substance: INTERFERON BETA-1A
     Indication: MULTIPLE SCLEROSIS
     Dosage: REBI?JECT II/MANUAL
     Route: 058
     Dates: start: 20071219

REACTIONS (1)
  - Breast cancer stage I [Recovered/Resolved]

NARRATIVE: CASE EVENT DATE: 202002
